FAERS Safety Report 4346249-8 (Version None)
Quarter: 2004Q2

REPORT INFORMATION
  Report Type: 
  Country: None (occurrence: None)
  Receive Date: 20040423
  Receipt Date: 20040423
  Transmission Date: 20050107
  Serious: Yes (Hospitalization)
  Sender: FDA-Public Use
  Company Number: None

PATIENT
  Sex: Female
  Weight: 68.1 kg

DRUGS (6)
  1. IMATINIB MESYLATE [Suspect]
     Indication: GLIOBLASTOMA MULTIFORME
     Dosage: 400 MG QD PO
     Route: 048
     Dates: start: 20040322, end: 20040422
  2. HYDROXYUREA [Suspect]
     Indication: GLIOBLASTOMA MULTIFORME
     Dosage: 500 MG PO BID
     Route: 048
     Dates: start: 20040322, end: 20040422
  3. PRILOSEC [Concomitant]
  4. CALCIUM [Concomitant]
  5. DECADRON [Concomitant]
  6. HALDOL [Concomitant]

REACTIONS (2)
  - DELIRIUM [None]
  - PSYCHOTIC DISORDER [None]
